FAERS Safety Report 7299821-X (Version None)
Quarter: 2011Q1

REPORT INFORMATION
  Report Type: 
  Country: None (occurrence: None)
  Receive Date: 20110217
  Receipt Date: 20110202
  Transmission Date: 20110831
  Serious: Yes (Other)
  Sender: FDA-Public Use
  Company Number: BR-BAYER-2011-010735

PATIENT
  Sex: Male

DRUGS (3)
  1. BETAFERON [Suspect]
     Indication: MULTIPLE SCLEROSIS
     Dosage: 9.6 MIU, QOD
     Route: 058
  2. PURAN T4 [Concomitant]
     Indication: ADRENAL INSUFFICIENCY
     Dosage: 100 MG, QD
     Route: 048
     Dates: start: 20080101
  3. METICORTEN [Concomitant]
     Indication: ADRENAL INSUFFICIENCY
     Dosage: 1.5 DF, QD
     Route: 048
     Dates: start: 19900101

REACTIONS (2)
  - TOOTH LOSS [None]
  - LOOSE TOOTH [None]
